FAERS Safety Report 7726001-3 (Version None)
Quarter: 2011Q3

REPORT INFORMATION
  Report Type: 
  Country: None (occurrence: None)
  Receive Date: 20110831
  Receipt Date: 20110819
  Transmission Date: 20111222
  Serious: Yes (Hospitalization)
  Sender: FDA-Public Use
  Company Number: 2011AP001840

PATIENT
  Age: 66 Year
  Sex: Female

DRUGS (14)
  1. MIRTAZAPINE [Suspect]
     Indication: PARANOIA
     Dosage: 15 MG;QD
  2. TRAMADOL HCL [Concomitant]
  3. MOXIFLOXACIN HCL [Concomitant]
  4. WARFARIN SODIUM [Concomitant]
  5. PAROXETINE HCL [Suspect]
     Indication: PRODUCT USED FOR UNKNOWN INDICATION
     Dosage: 20 MG:QD
  6. HALOPERIDOL [Concomitant]
  7. ATORVASTATIN [Concomitant]
  8. OXYCODONE HCL [Concomitant]
  9. FUROSEMIDE [Concomitant]
  10. AMLODIPINE [Concomitant]
  11. DOMPERIDONE (DOMPERIDONE) [Concomitant]
  12. MELOXICAM [Concomitant]
  13. IMIPRAMINE [Concomitant]
  14. TRAZODONE HCL [Concomitant]

REACTIONS (6)
  - MOBILITY DECREASED [None]
  - SEROTONIN SYNDROME [None]
  - PNEUMONIA [None]
  - CEREBRAL ISCHAEMIA [None]
  - HYPOPHAGIA [None]
  - DEMYELINATION [None]
